FAERS Safety Report 9159223 (Version 1)
Quarter: 2013Q1

REPORT INFORMATION
  Report Type: Spontaneous
  Country: US (occurrence: None)
  Receive Date: 20130311
  Receipt Date: 20130311
  Transmission Date: 20140127
  Serious: Yes (Death, Hospitalization, Other)
  Sender: FDA-Public Use
  Company Number: 2013US-004610

PATIENT
  Age: 83 Year
  Sex: Female

DRUGS (23)
  1. OMONTYS (PEGINESATIDE) SOLUTION FOR INJECTION [Suspect]
     Indication: NEPHROGENIC ANAEMIA
     Dosage: 6 MG,  UNK,  INTRAVENOUS?12/07/2013  TO  12/07/2013 ???
     Route: 042
     Dates: start: 20121207, end: 20121207
  2. EPOGEN (EPOETIN ALFA) [Concomitant]
  3. HEPARIN (HEPARIN) [Concomitant]
  4. VENOFER (SACCH ARATED IRON OXIDE) [Concomitant]
  5. ALLOPURINOL [Concomitant]
  6. ALPRAZOLAM (ALPRAZOLAM) [Concomitant]
  7. ASPIRIN (ACETYLSALICYLIC ACID) [Concomitant]
  8. CLONIDINE (CLONIDINE) [Concomitant]
  9. ISOSORBIDE MONONITRATE (ISOSORBIDE MONONITRATE) [Concomitant]
  10. LEVOTHYROXINE (LEVOTHYROXINE) [Concomitant]
  11. LISINOPRIL (LISINOPRIL) [Concomitant]
  12. METOPROLOL TARTRATE (METOPROLOL TARTRATE) [Concomitant]
  13. MIRTAZAPINE (MIRTAZAPINE) [Concomitant]
  14. NEPRO (CARBOHYDRATES NOS, FATS NOS, MINERALS NOS, PROTEIN, VITAMINS NOS) [Concomitant]
  15. NIFEDIPINE (NIFEDIPINE) [Concomitant]
  16. OS-CAL D (CALCIUM CARBONATE, COLECALCIFEROL) [Concomitant]
  17. PANTOPRAZOLE (PANTOPRAZOLE) [Concomitant]
  18. PLAVIX (CLOPIDOGREL BISULFATE) [Concomitant]
  19. PRIMIDONE (PRIMIDONE) [Concomitant]
  20. RENAL VITAMIN [Concomitant]
  21. SENNA PLUS (SENNA ALEXANDRINA) [Concomitant]
  22. SIMVASTATIN (SIMVASTATIN) [Suspect]
  23. ZETIA (EZETIMIBE) [Suspect]

REACTIONS (8)
  - Haemorrhage intracranial [None]
  - Fall [None]
  - Head injury [None]
  - Hypertension [None]
  - Respiratory failure [None]
  - Blood potassium decreased [None]
  - Blood glucose increased [None]
  - Cerebrovascular accident [None]
